FAERS Safety Report 16577534 (Version 1)
Quarter: 2019Q3

REPORT INFORMATION
  Report Type: Spontaneous
  Country: US (occurrence: US)
  Receive Date: 20190715
  Receipt Date: 20190715
  Transmission Date: 20191004
  Serious: Yes (Other)
  Sender: FDA-Public Use
  Company Number: None

PATIENT
  Age: 42 Year
  Weight: 74.25 kg

DRUGS (2)
  1. CLINDAMYCIN HCL 300 MG [Suspect]
     Active Substance: CLINDAMYCIN HYDROCHLORIDE
     Indication: STREPTOCOCCAL INFECTION
     Dosage: ?          QUANTITY:30 CAPSULE(S);?
     Route: 048
     Dates: start: 20190702, end: 20190712
  2. CLINDAMYCIN HCL 300 MG [Suspect]
     Active Substance: CLINDAMYCIN HYDROCHLORIDE
     Indication: PERITONSILLAR ABSCESS
     Dosage: ?          QUANTITY:30 CAPSULE(S);?
     Route: 048
     Dates: start: 20190702, end: 20190712

REACTIONS (2)
  - Fatigue [None]
  - Rash [None]

NARRATIVE: CASE EVENT DATE: 20190708
